FAERS Safety Report 9216022 (Version 1)
Quarter: 2013Q2

REPORT INFORMATION
  Report Type: Spontaneous
  Country: US (occurrence: None)
  Receive Date: 20130402
  Receipt Date: 20130402
  Transmission Date: 20140414
  Serious: Yes (Other)
  Sender: FDA-Public Use
  Company Number: 1647074

PATIENT
  Sex: Female

DRUGS (19)
  1. DEXTROSE [Suspect]
     Indication: PARENTERAL NUTRITION
  2. MAGNESIUM SULFATE [Suspect]
     Indication: PARENTERAL NUTRITION
  3. SODIUM PHOSPHATE [Suspect]
     Indication: PARENTERAL NUTRITION
  4. POTASSIUM ACETATE [Suspect]
     Indication: PARENTERAL NUTRITION
  5. POTASSIUM CHLORIDE [Suspect]
     Indication: PARENTERAL NUTRITION
  6. SODIUM ACETATE [Suspect]
     Indication: PARENTERAL NUTRITION
  7. SODIUM CHLORIDE [Suspect]
     Indication: PARENTERAL NUTRITION
  8. ADDITRACE [Suspect]
     Indication: PARENTERAL NUTRITION
  9. MULTIVITAMIN [Suspect]
     Indication: PARENTERAL NUTRITION
  10. CALCIUM GLUCONATE [Suspect]
     Indication: PARENTERAL NUTRITION
  11. TRAVASOL [Suspect]
     Indication: PARENTERAL NUTRITION
  12. LIPID EMULSION [Suspect]
     Indication: PARENTERAL NUTRITION
  13. FAMOTIDINE [Suspect]
     Indication: PARENTERAL NUTRITION
  14. URSODEOXYCHOLIC ACID [Concomitant]
  15. TEMAZEPAM [Concomitant]
  16. HYDROCODONE W/ ACETAMINOPHEN [Concomitant]
  17. ERGOCALCIFEROL [Concomitant]
  18. COUMADIN [Concomitant]
  19. CALCIUM [Concomitant]

REACTIONS (6)
  - Drug-induced liver injury [None]
  - Nausea [None]
  - Vomiting [None]
  - Diarrhoea [None]
  - Hepatic steatosis [None]
  - Weight decreased [None]
